FAERS Safety Report 6018538-2 (Version None)
Quarter: 2008Q4

REPORT INFORMATION
  Report Type: 
  Country: None (occurrence: None)
  Receive Date: 20081223
  Receipt Date: 20081204
  Transmission Date: 20090506
  Serious: No
  Sender: FDA-Public Use
  Company Number: US-B.I. PHARMACEUTICALS,INC./RIDGEFIELD-2008-BP-18285BP

PATIENT

DRUGS (1)
  1. VIRAMUNE [Suspect]
     Indication: HIV INFECTION CDC GROUP IV SUBGROUP A

REACTIONS (2)
  - ABDOMINAL DISTENSION [None]
  - OCULAR HYPERAEMIA [None]
